FAERS Safety Report 9909786 (Version 1)
Quarter: 2014Q1

REPORT INFORMATION
  Report Type: Spontaneous
  Country: US (occurrence: None)
  Receive Date: 20140218
  Receipt Date: 20140218
  Transmission Date: 20141002
  Serious: Yes (Other)
  Sender: FDA-Public Use
  Company Number: None

PATIENT
  Age: 42 Year
  Sex: Female
  Weight: 102.06 kg

DRUGS (2)
  1. AMOXICILLIN\CLAVULANATE POTASSIUM [Suspect]
     Indication: BRONCHITIS
     Dosage: 1 TAB EVERY 12 HOURS?TWICE DAILY?TAKEN BY MOUTH
     Route: 048
     Dates: start: 20140210, end: 20140211
  2. AMOXICILLIN\CLAVULANATE POTASSIUM [Suspect]
     Indication: SINUSITIS
     Dosage: 1 TAB EVERY 12 HOURS?TWICE DAILY?TAKEN BY MOUTH
     Route: 048
     Dates: start: 20140210, end: 20140211

REACTIONS (3)
  - Urticaria [None]
  - Oedema peripheral [None]
  - Product quality issue [None]
